FAERS Safety Report 9011159 (Version 1)
Quarter: 2013Q1

REPORT INFORMATION
  Report Type: Spontaneous
  Country: US (occurrence: US)
  Receive Date: 20130111
  Receipt Date: 20130111
  Transmission Date: 20140127
  Serious: Yes (Hospitalization)
  Sender: FDA-Public Use
  Company Number: US-009507513-1301USA002798

PATIENT
  Sex: Female

DRUGS (6)
  1. SINGULAIR [Suspect]
     Route: 048
  2. SPIRIVA [Suspect]
     Dosage: 18 MICROGRAM, UNK
     Route: 055
  3. PRILOSEC [Concomitant]
  4. KLONOPIN [Concomitant]
  5. DILTIAZEM HYDROCHLORIDE [Concomitant]
  6. NITROFURANTOIN [Concomitant]

REACTIONS (4)
  - Intervertebral disc protrusion [Unknown]
  - Neck pain [Unknown]
  - Exostosis [Unknown]
  - Back pain [Unknown]
